FAERS Safety Report 19060294 (Version 1)
Quarter: 2021Q1

REPORT INFORMATION
  Report Type: Spontaneous
  Country: US (occurrence: US)
  Receive Date: 20210326
  Receipt Date: 20210326
  Transmission Date: 20210420
  Serious: No
  Sender: FDA-Public Use
  Company Number: US-INSUD PHARMA-2103US00239

PATIENT

DRUGS (1)
  1. EMOQUETTE [Suspect]
     Active Substance: DESOGESTREL\ETHINYL ESTRADIOL
     Indication: ACNE
     Dosage: UNKNOWN
     Route: 048

REACTIONS (3)
  - Product use in unapproved indication [Unknown]
  - Alopecia [Not Recovered/Not Resolved]
  - Product dose omission issue [Unknown]
